FAERS Safety Report 18145508 (Version 5)
Quarter: 2021Q1

REPORT INFORMATION
  Report Type: Report from Study
  Country: None (occurrence: BE)
  Receive Date: 20200813
  Receipt Date: 20210314
  Transmission Date: 20210419
  Serious: Yes (Hospitalization, Other)
  Sender: FDA-Public Use
  Company Number: BE-ABBVIE-20K-013-3522585-00

PATIENT
  Age: 55 Year
  Sex: Male
  Weight: 56 kg

DRUGS (9)
  1. DUODOPA [Suspect]
     Active Substance: CARBIDOPA\LEVODOPA
     Dosage: MD= 2.0 ML, CD= 1.4 ML/HR DURING 16HRS, ED= 0.8 ML
     Route: 050
     Dates: start: 20210113, end: 20210308
  2. DUODOPA [Suspect]
     Active Substance: CARBIDOPA\LEVODOPA
     Indication: PARKINSON^S DISEASE
     Dosage: UNKNOWN DOSAGES
     Route: 050
     Dates: start: 20071115
  3. DUODOPA [Suspect]
     Active Substance: CARBIDOPA\LEVODOPA
     Dosage: MD= 2.0 ML, CD= 1.2 ML/HR DURING 16HRS, ED= 0.8 ML
     Route: 050
     Dates: start: 20200806, end: 20200810
  4. DUODOPA [Suspect]
     Active Substance: CARBIDOPA\LEVODOPA
     Dosage: MD= 2.0 ML, CD= 1.3 ML/HR DURING 16HRS, ED= 0.8 ML
     Route: 050
     Dates: start: 20200810, end: 20200811
  5. DUODOPA [Suspect]
     Active Substance: CARBIDOPA\LEVODOPA
     Dosage: MD= 2.0 ML, CD= 1.5 ML/HR DURING 16HRS, ED= 0.8 ML
     Route: 050
     Dates: start: 20210308
  6. DUODOPA [Suspect]
     Active Substance: CARBIDOPA\LEVODOPA
     Dosage: MD= 2.0 ML, CD= 1.4 ML/HR DURING 16HRS, ED= 0.8 ML
     Route: 050
     Dates: end: 20200806
  7. DUODOPA [Suspect]
     Active Substance: CARBIDOPA\LEVODOPA
     Dosage: MD= 2.0 ML, CD= 1.3 ML/HR DURING 16HRS, ED= 0.8 ML
     Route: 050
     Dates: start: 20200918, end: 20210113
  8. LEPONEX [Concomitant]
     Active Substance: CLOZAPINE
     Indication: MENTAL DISORDER
  9. DUODOPA [Suspect]
     Active Substance: CARBIDOPA\LEVODOPA
     Dosage: MD= 2.0 ML, CD= 1.2 ML/HR DURING 16HRS, ED= 0.8 ML
     Route: 050
     Dates: start: 20200811, end: 20200918

REACTIONS (12)
  - Wrong technique in device usage process [Unknown]
  - Bradykinesia [Unknown]
  - Restlessness [Unknown]
  - Mental disorder [Recovered/Resolved]
  - Confusional state [Recovered/Resolved]
  - Aggression [Recovered/Resolved]
  - Therapeutic product effect incomplete [Unknown]
  - Food aversion [Recovered/Resolved]
  - Abnormal behaviour [Recovered/Resolved]
  - Hallucination [Recovered/Resolved]
  - Freezing phenomenon [Not Recovered/Not Resolved]
  - Paranoia [Recovered/Resolved]

NARRATIVE: CASE EVENT DATE: 20200814
